FAERS Safety Report 9751014 (Version 1)
Quarter: 2013Q4

REPORT INFORMATION
  Report Type: Spontaneous
  Country: US (occurrence: US)
  Receive Date: 20131212
  Receipt Date: 20131212
  Transmission Date: 20140711
  Serious: Yes (Other)
  Sender: FDA-Public Use
  Company Number: US-TEVA-398566USA

PATIENT
  Age: 57 Year
  Sex: Female

DRUGS (1)
  1. PARAGARD 380A [Suspect]
     Indication: CONTRACEPTION
     Dates: start: 20001004

REACTIONS (4)
  - Device expulsion [Not Recovered/Not Resolved]
  - Embedded device [Unknown]
  - Vaginal haemorrhage [Unknown]
  - Medical device complication [Unknown]
